FAERS Safety Report 19812034 (Version 2)
Quarter: 2021Q3

REPORT INFORMATION
  Report Type: Report from Study
  Country: AR (occurrence: AR)
  Receive Date: 20210909
  Receipt Date: 20210920
  Transmission Date: 20211014
  Serious: Yes (Life-Threatening, Hospitalization)
  Sender: FDA-Public Use
  Company Number: NVSC2021AR204666

PATIENT
  Sex: Male

DRUGS (3)
  1. EXFORGE HCT [Suspect]
     Active Substance: AMLODIPINE BESYLATE\HYDROCHLOROTHIAZIDE\VALSARTAN
     Indication: PRODUCT USED FOR UNKNOWN INDICATION
     Dosage: 1 DF, QD
     Route: 065
  2. DIOVAN [Suspect]
     Active Substance: VALSARTAN
     Dosage: UNK
     Route: 065
  3. DIOVAN [Suspect]
     Active Substance: VALSARTAN
     Indication: PRODUCT USED FOR UNKNOWN INDICATION
     Dosage: 2 DF, QD (SOMETIME 2 OF 80 MG) STARTED BEFORE 1990
     Route: 065

REACTIONS (4)
  - Cardiac arrest [Recovering/Resolving]
  - Near death experience [Recovering/Resolving]
  - Cardiac disorder [Recovering/Resolving]
  - Inappropriate schedule of product administration [Unknown]
